FAERS Safety Report 19542146 (Version 1)
Quarter: 2021Q3

REPORT INFORMATION
  Report Type: Spontaneous
  Country: CN (occurrence: CN)
  Receive Date: 20210713
  Receipt Date: 20210713
  Transmission Date: 20211014
  Serious: Yes (Hospitalization)
  Sender: FDA-Public Use
  Company Number: CN-BAXTER-2021BAX020022

PATIENT
  Age: 12 Month
  Sex: Female
  Weight: 8 kg

DRUGS (4)
  1. ENDOXAN [Suspect]
     Active Substance: CYCLOPHOSPHAMIDE
     Dosage: CYCLOPHOSPHAMIDE DILUTED WITH 0.9% NS, DOSE RE?INTRODUCED.
     Route: 041
  2. 0.9% SODIUM CHLORIDE INJECTION [Suspect]
     Active Substance: SODIUM CHLORIDE
     Indication: MEDICATION DILUTION
     Dosage: CYCLOPHOSPHAMIDE 0.5G DILUTED WITH 0.9% NS 50ML
     Route: 041
     Dates: start: 20210619, end: 20210619
  3. ENDOXAN [Suspect]
     Active Substance: CYCLOPHOSPHAMIDE
     Indication: EWING^S SARCOMA
     Dosage: CYCLOPHOSPHAMIDE 0.5G DILUTED WITH 0.9% NS 50ML.
     Route: 041
     Dates: start: 20210619, end: 20210619
  4. 0.9% SODIUM CHLORIDE INJECTION [Suspect]
     Active Substance: SODIUM CHLORIDE
     Dosage: CYCLOPHOSPHAMIDE DILUTED WITH 0.9% NS, DOSE RE?INTRODUCED.
     Route: 041

REACTIONS (2)
  - White blood cell count decreased [Recovering/Resolving]
  - Granulocytopenia [Recovering/Resolving]

NARRATIVE: CASE EVENT DATE: 20210625
